FAERS Safety Report 7463282-8 (Version None)
Quarter: 2011Q2

REPORT INFORMATION
  Report Type: 
  Country: None (occurrence: None)
  Receive Date: 20110506
  Receipt Date: 20110503
  Transmission Date: 20111010
  Serious: Yes (Death)
  Sender: FDA-Public Use
  Company Number: DE-ROCHE-775301

PATIENT
  Sex: Male
  Weight: 78 kg

DRUGS (4)
  1. FOLINIC ACID [Concomitant]
     Dates: start: 20101103, end: 20101215
  2. IRINOTECAN HYDROCHLORIDE [Concomitant]
     Dates: start: 20101103, end: 20101215
  3. AVASTIN [Suspect]
     Dosage: DOSE 5
     Route: 065
     Dates: start: 20101103, end: 20101215
  4. FLUOROURACIL [Concomitant]
     Dates: start: 20101103, end: 20101215

REACTIONS (2)
  - NEOPLASM MALIGNANT [None]
  - NO THERAPEUTIC RESPONSE [None]
